FAERS Safety Report 7400532-8 (Version None)
Quarter: 2011Q2

REPORT INFORMATION
  Report Type: 
  Country: None (occurrence: None)
  Receive Date: 20110407
  Receipt Date: 20110405
  Transmission Date: 20111010
  Serious: Yes (Hospitalization)
  Sender: FDA-Public Use
  Company Number: NZ-PFIZER INC-2011076636

PATIENT
  Sex: Female

DRUGS (5)
  1. ASPIRIN [Concomitant]
     Dosage: UNK
  2. CHAMPIX [Suspect]
     Dosage: UNK
  3. SIMVASTATIN [Concomitant]
     Dosage: UNK
  4. PRIMIDONE [Concomitant]
     Indication: EPILEPSY
     Dosage: UNK
  5. THYROXINE [Concomitant]
     Dosage: UNK

REACTIONS (4)
  - FALL [None]
  - VOMITING [None]
  - DIZZINESS [None]
  - VISION BLURRED [None]
